FAERS Safety Report 5524696-6 (Version None)
Quarter: 2007Q4

REPORT INFORMATION
  Report Type: 
  Country: None (occurrence: None)
  Receive Date: 20071123
  Receipt Date: 20071119
  Transmission Date: 20080405
  Serious: Yes (Other)
  Sender: FDA-Public Use
  Company Number: CH-SHR-CH-2007-043579

PATIENT
  Age: 28 Year
  Sex: Male

DRUGS (13)
  1. FLUDARABINE PHOSPHATE [Suspect]
     Indication: BONE MARROW CONDITIONING REGIMEN
  2. METHOTREXATE [Concomitant]
  3. CYCLOSPORINE [Concomitant]
  4. PREDNISONE TAB [Suspect]
     Dosage: 15 MG, 1X/DAY
  5. RITUXIMAB [Suspect]
     Dosage: 375 MG/M2, 4X/WEEK
  6. ETOPOSIDE [Suspect]
     Dosage: ESHAP, 2 CYCLES
  7. ETOPOSIDE [Suspect]
     Dosage: BEAM
  8. CARMUSTINE [Suspect]
     Dosage: BEAM
  9. CYTARABINE [Suspect]
     Dosage: ESHAP, 2 CYCLES
  10. CYTARABINE [Suspect]
     Dosage: BEAM
  11. MELPHALAN [Suspect]
     Dosage: BEAM
  12. METHYLPREDNISOLONE [Suspect]
     Dosage: ESHAP, 2 CYCLES
  13. CISPLATIN [Suspect]
     Dosage: ESHAP, 2 CYCLES

REACTIONS (12)
  - ACUTE GRAFT VERSUS HOST DISEASE IN INTESTINE [None]
  - ACUTE GRAFT VERSUS HOST DISEASE IN SKIN [None]
  - ARTHRITIS BACTERIAL [None]
  - BONE MARROW FAILURE [None]
  - BRONCHOPULMONARY ASPERGILLOSIS [None]
  - CHRONIC GRAFT VERSUS HOST DISEASE [None]
  - CYTOMEGALOVIRUS INFECTION [None]
  - HYPOGAMMAGLOBULINAEMIA [None]
  - PNEUMONITIS [None]
  - RENAL FAILURE ACUTE [None]
  - RESPIRATORY DISORDER [None]
  - UREAPLASMA INFECTION [None]
